FAERS Safety Report 7717862-2 (Version None)
Quarter: 2011Q3

REPORT INFORMATION
  Report Type: 
  Country: None (occurrence: None)
  Receive Date: 20110824
  Receipt Date: 20110810
  Transmission Date: 20111222
  Serious: Yes (Hospitalization, Disabling, Other)
  Sender: FDA-Public Use
  Company Number: 2011SP015421

PATIENT
  Age: 27 Year
  Sex: Female
  Weight: 67.1324 kg

DRUGS (3)
  1. NUVARING [Suspect]
     Indication: CONTRACEPTION
     Dates: start: 20060801, end: 20080425
  2. PREDNISONE [Suspect]
     Indication: HEADACHE
     Dates: start: 20080401
  3. UNSPECIFIED [Suspect]
     Indication: PRODUCT USED FOR UNKNOWN INDICATION

REACTIONS (19)
  - PAIN IN EXTREMITY [None]
  - LYMPHOPROLIFERATIVE DISORDER [None]
  - MIGRAINE [None]
  - RAYNAUD'S PHENOMENON [None]
  - VASOSPASM [None]
  - LYMPHADENOPATHY [None]
  - INCISION SITE HAEMATOMA [None]
  - SINUS TACHYCARDIA [None]
  - HEART RATE IRREGULAR [None]
  - MENTAL DISORDER [None]
  - HYPOAESTHESIA [None]
  - BLOOD CHOLESTEROL INCREASED [None]
  - EMOTIONAL DISORDER [None]
  - CYANOSIS [None]
  - ARTERIAL THROMBOSIS LIMB [None]
  - HYPERCOAGULATION [None]
  - C-REACTIVE PROTEIN INCREASED [None]
  - PERIPHERAL ISCHAEMIA [None]
  - DRUG INTERACTION [None]
